FAERS Safety Report 17377823 (Version 2)
Quarter: 2020Q1

REPORT INFORMATION
  Report Type: Report from Study
  Country: JP (occurrence: JP)
  Receive Date: 20200206
  Receipt Date: 20200311
  Transmission Date: 20200409
  Serious: Yes (Hospitalization)
  Sender: FDA-Public Use
  Company Number: JP-ROCHE-2536757

PATIENT
  Age: 43 Year
  Sex: Male
  Weight: 55.2 kg

DRUGS (5)
  1. LORCAM [LORNOXICAM] [Concomitant]
     Indication: CERVICOBRACHIAL SYNDROME
     Route: 048
     Dates: start: 20190412
  2. COLCHICINE. [Suspect]
     Active Substance: COLCHICINE
     Indication: FAMILIAL MEDITERRANEAN FEVER
     Dosage: THE BEGINNING OF DOSAGE DAY: BEFORE ACQUIRING AGREEMENT
     Route: 048
  3. EPERISONE HYDROCHLORIDE [Concomitant]
     Active Substance: EPERISONE HYDROCHLORIDE
     Indication: CERVICOBRACHIAL SYNDROME
     Dosage: THE BEGINNING OF DOSAGE DAY: BEFORE ACQUIRING AGREEMENT
     Route: 048
  4. TOCILIZUMAB. [Suspect]
     Active Substance: TOCILIZUMAB
     Indication: FAMILIAL MEDITERRANEAN FEVER
     Route: 058
     Dates: start: 20180420
  5. TOCILIZUMAB. [Suspect]
     Active Substance: TOCILIZUMAB
     Route: 058
     Dates: start: 20181005

REACTIONS (1)
  - Diarrhoea [Not Recovered/Not Resolved]

NARRATIVE: CASE EVENT DATE: 20190412
